FAERS Safety Report 18033359 (Version 1)
Quarter: 2020Q3

REPORT INFORMATION
  Report Type: Spontaneous
  Country: AT (occurrence: AT)
  Receive Date: 20200716
  Receipt Date: 20200716
  Transmission Date: 20201103
  Serious: Yes (Death, Hospitalization)
  Sender: FDA-Public Use
  Company Number: AT-ALLERGAN-2026206US

PATIENT
  Sex: Male
  Weight: 70 kg

DRUGS (3)
  1. ZYVOXID [Concomitant]
     Active Substance: LINEZOLID
     Indication: ARTHRITIS BACTERIAL
     Dosage: 600 MG, Q12H
     Route: 048
     Dates: start: 20200407, end: 20200505
  2. XYDALBA [Suspect]
     Active Substance: DALBAVANCIN HYDROCHLORIDE
     Indication: ARTHRITIS BACTERIAL
     Dosage: UNK
     Route: 042
     Dates: start: 20200526, end: 20200603
  3. FUCIDIN [Suspect]
     Active Substance: FUSIDATE SODIUM
     Indication: ARTHRITIS BACTERIAL
     Dosage: 500 MG, Q8HR
     Route: 048
     Dates: start: 20200407, end: 20200512

REACTIONS (2)
  - Off label use [Unknown]
  - Hepatitis cholestatic [Fatal]

NARRATIVE: CASE EVENT DATE: 202004
